FAERS Safety Report 23728171 (Version 18)
Quarter: 2025Q3

REPORT INFORMATION
  Report Type: Spontaneous
  Country: US (occurrence: US)
  Receive Date: 20240410
  Receipt Date: 20250924
  Transmission Date: 20251020
  Serious: Yes (Hospitalization)
  Sender: SANOFI AVENTIS
  Company Number: US-SA-SAC20240404001282

PATIENT
  Age: 25 Year
  Sex: Male

DRUGS (4)
  1. ALTUVIIIO [Suspect]
     Active Substance: EFANESOCTOCOG ALFA
     Indication: Prophylaxis
     Dosage: 4430 U (+/- 10%), QW
     Route: 042
  2. ALTUVIIIO [Suspect]
     Active Substance: EFANESOCTOCOG ALFA
     Dosage: 2300 U, AS NEEDED Q3D POST OP
     Route: 042
     Dates: start: 202411
  3. ALTUVIIIO [Suspect]
     Active Substance: EFANESOCTOCOG ALFA
     Route: 042
     Dates: start: 202411
  4. TRANEXAMIC ACID [Suspect]
     Active Substance: TRANEXAMIC ACID
     Route: 065
     Dates: end: 202411

REACTIONS (34)
  - Psoriasis [Unknown]
  - Arthritis [Unknown]
  - Arthralgia [Unknown]
  - Gait disturbance [Unknown]
  - Wound secretion [Unknown]
  - Plastic surgery to the face [Unknown]
  - Procedural pain [Unknown]
  - Post procedural haemorrhage [Unknown]
  - Post procedural complication [Unknown]
  - Hypoaesthesia [Unknown]
  - Peripheral swelling [Unknown]
  - Wound secretion [Unknown]
  - Abscess limb [Unknown]
  - Bloody discharge [Unknown]
  - Pain [Unknown]
  - Abscess limb [Unknown]
  - Purulent discharge [Unknown]
  - Bloody discharge [Unknown]
  - Pain [Unknown]
  - Hyperhidrosis [Unknown]
  - Fall [Unknown]
  - Haemorrhage [Unknown]
  - Pain [Unknown]
  - Asthenia [Not Recovered/Not Resolved]
  - Dizziness [Not Recovered/Not Resolved]
  - Wound haemorrhage [Unknown]
  - Psoriasis [Unknown]
  - Scab [Unknown]
  - Haemorrhage [Unknown]
  - Nausea [Not Recovered/Not Resolved]
  - Vomiting [Recovered/Resolved]
  - Pain in extremity [Unknown]
  - Pyrexia [Unknown]
  - Arthralgia [Unknown]

NARRATIVE: CASE EVENT DATE: 20240101
